FAERS Safety Report 17547533 (Version 1)
Quarter: 2020Q1

REPORT INFORMATION
  Report Type: Spontaneous
  Country: DE (occurrence: DE)
  Receive Date: 20200316
  Receipt Date: 20200316
  Transmission Date: 20200409
  Serious: Yes (Other)
  Sender: FDA-Public Use
  Company Number: DE-NAPPMUNDI-GBR-2020-0075635

PATIENT
  Sex: Male

DRUGS (1)
  1. PALLADON [Suspect]
     Active Substance: HYDROMORPHONE
     Indication: PRODUCT USED FOR UNKNOWN INDICATION
     Dosage: 1 G, UNK
     Route: 058
     Dates: start: 20200302, end: 20200303

REACTIONS (4)
  - Accidental overdose [Unknown]
  - Disturbance in attention [Unknown]
  - Incorrect drug administration rate [Unknown]
  - Vomiting [Unknown]

NARRATIVE: CASE EVENT DATE: 20200302
